FAERS Safety Report 7075075-4 (Version None)
Quarter: 2010Q4

REPORT INFORMATION
  Report Type: 
  Country: None (occurrence: None)
  Receive Date: 20101029
  Receipt Date: 20100331
  Transmission Date: 20110411
  Serious: No
  Sender: FDA-Public Use
  Company Number: US-WYE-H14455910

PATIENT
  Sex: Male

DRUGS (3)
  1. ADVIL PM [Suspect]
  2. ALKA-SELTZER [Concomitant]
  3. PEPTO-BISMOL [Concomitant]

REACTIONS (2)
  - ABDOMINAL DISCOMFORT [None]
  - MALAISE [None]
